FAERS Safety Report 5640531-X (Version None)
Quarter: 2008Q1

REPORT INFORMATION
  Report Type: 
  Country: None (occurrence: None)
  Receive Date: 20080227
  Receipt Date: 20080218
  Transmission Date: 20080703
  Serious: Yes (Other)
  Sender: FDA-Public Use
  Company Number: DE-JNJFOC-20080202026

PATIENT
  Age: 45 Year
  Sex: Female

DRUGS (2)
  1. REMICADE [Suspect]
     Route: 042
  2. REMICADE [Suspect]
     Indication: CROHN'S DISEASE
     Route: 042

REACTIONS (7)
  - ARTHRALGIA [None]
  - CHEST PAIN [None]
  - ERYTHEMA [None]
  - FACE OEDEMA [None]
  - INFUSION RELATED REACTION [None]
  - OESOPHAGEAL DISORDER [None]
  - RASH [None]
